FAERS Safety Report 8245519-0 (Version None)
Quarter: 2012Q1

REPORT INFORMATION
  Report Type: 
  Country: None (occurrence: None)
  Receive Date: 20120329
  Receipt Date: 20120319
  Transmission Date: 20120608
  Serious: Yes (Death, Other)
  Sender: FDA-Public Use
  Company Number: JP-BAXTER-2012BH007551

PATIENT
  Sex: Female

DRUGS (1)
  1. DIANEAL-N PD-4 1.5 PD SOLUTION [Suspect]
     Route: 033

REACTIONS (2)
  - ATRIAL FIBRILLATION [None]
  - CEREBRAL INFARCTION [None]
